FAERS Safety Report 9758660 (Version 1)
Quarter: 2013Q4

REPORT INFORMATION
  Report Type: Spontaneous
  Country: US (occurrence: None)
  Receive Date: 20131216
  Receipt Date: 20131216
  Transmission Date: 20140711
  Serious: Yes (Other)
  Sender: FDA-Public Use
  Company Number: RB-47173-2012

PATIENT
  Age: 52 Year
  Sex: Male

DRUGS (2)
  1. SUBOXONE 8 MG [Suspect]
     Indication: DRUG DEPENDENCE
     Dosage: (8 MG SUBLINGUAL)
  2. SUBOXONE 8 MG [Suspect]
     Indication: DRUG DEPENDENCE
     Dosage: (4 MG BID, SUBOXONE FILM SUBLINGUAL)

REACTIONS (6)
  - Gingival recession [None]
  - Underdose [None]
  - Wrong technique in drug usage process [None]
  - Loose tooth [None]
  - Hypertension [None]
  - Anxiety [None]
